FAERS Safety Report 9303634 (Version 1)
Quarter: 2013Q2

REPORT INFORMATION
  Report Type: Spontaneous
  Country: SG (occurrence: SG)
  Receive Date: 20130522
  Receipt Date: 20130522
  Transmission Date: 20140414
  Serious: Yes (Other)
  Sender: FDA-Public Use
  Company Number: SG-BAYER-2013-063637

PATIENT
  Age: 44 Year
  Sex: Female

DRUGS (1)
  1. CIPROFLOXACIN [Suspect]
     Dosage: UNK

REACTIONS (3)
  - Depressed level of consciousness [Unknown]
  - Headache [Unknown]
  - Insomnia [Unknown]
